FAERS Safety Report 14274383 (Version 1)
Quarter: 2017Q4

REPORT INFORMATION
  Report Type: Spontaneous
  Country: US (occurrence: None)
  Receive Date: 20171212
  Receipt Date: 20171212
  Transmission Date: 20180321
  Serious: Yes (Hospitalization)
  Sender: FDA-Public Use
  Company Number: None

PATIENT
  Age: 59 Year
  Sex: Female

DRUGS (3)
  1. SILDENAFIL 20MG [Suspect]
     Active Substance: SILDENAFIL
     Indication: PRODUCT USED FOR UNKNOWN INDICATION
     Route: 048
     Dates: start: 20170817
  2. LETAIRIS [Concomitant]
     Active Substance: AMBRISENTAN
  3. IRON [Concomitant]
     Active Substance: IRON

REACTIONS (1)
  - Fluid retention [None]

NARRATIVE: CASE EVENT DATE: 20171204
